FAERS Safety Report 5886766-2 (Version None)
Quarter: 2008Q3

REPORT INFORMATION
  Report Type: 
  Country: None (occurrence: None)
  Receive Date: 20080917
  Receipt Date: 20080908
  Transmission Date: 20090109
  Serious: Yes (Life-Threatening, Hospitalization)
  Sender: FDA-Public Use
  Company Number: FR-SANOFI-SYNTHELABO-A02200801544

PATIENT
  Sex: Male
  Weight: 82 kg

DRUGS (9)
  1. ELOXATIN [Suspect]
     Indication: TRANSITIONAL CELL CARCINOMA
     Route: 041
     Dates: start: 20080507, end: 20080507
  2. SOLU-MEDROL [Concomitant]
     Route: 042
     Dates: start: 20080507, end: 20080507
  3. VOGALENE [Concomitant]
     Route: 042
     Dates: start: 20080430, end: 20080506
  4. TRANXENE [Concomitant]
     Route: 042
     Dates: start: 20080507, end: 20080507
  5. PERIDYS [Concomitant]
     Route: 048
     Dates: start: 20080507, end: 20080508
  6. ZOPHREN [Concomitant]
     Route: 042
     Dates: start: 20080507, end: 20080507
  7. THERALENE [Concomitant]
     Dosage: UNK
     Route: 065
  8. NEXIUM [Concomitant]
     Dosage: UNK
     Route: 065
  9. GEMZAR [Suspect]
     Route: 042
     Dates: start: 20080507, end: 20080507

REACTIONS (9)
  - ASCITES [None]
  - DISSEMINATED INTRAVASCULAR COAGULATION [None]
  - HEPATIC FAILURE [None]
  - HEPATIC FIBROSIS [None]
  - HEPATORENAL SYNDROME [None]
  - JAUNDICE [None]
  - RENAL FAILURE [None]
  - THROMBOCYTOPENIA [None]
  - VENOOCCLUSIVE LIVER DISEASE [None]
